FAERS Safety Report 20870793 (Version 11)
Quarter: 2024Q1

REPORT INFORMATION
  Report Type: Report from Study
  Country: PT (occurrence: PT)
  Receive Date: 20220525
  Receipt Date: 20240201
  Transmission Date: 20240409
  Serious: Yes (Hospitalization, Other)
  Sender: FDA-Public Use
  Company Number: PT-ABBVIE-22K-130-4407425-00

PATIENT
  Sex: Male

DRUGS (7)
  1. HUMIRA [Suspect]
     Active Substance: ADALIMUMAB
     Indication: Hidradenitis
     Dosage: LOADING DOSE ONE?FORM STRENGTH: 40 MG
     Route: 058
     Dates: start: 20160907, end: 20160907
  2. HUMIRA [Suspect]
     Active Substance: ADALIMUMAB
     Dosage: LOADING DOSE TWO?FORM STRENGTH: 40 MG
     Route: 058
     Dates: start: 20160908, end: 20160908
  3. HUMIRA [Suspect]
     Active Substance: ADALIMUMAB
     Dosage: LOADING DOSE THREE?FORM STRENGTH: 40 MG
     Route: 058
     Dates: start: 20210921, end: 20210921
  4. HUMIRA [Suspect]
     Active Substance: ADALIMUMAB
     Dosage: FORM STRENGTH: 40 MG
     Route: 058
     Dates: start: 20161005, end: 2019
  5. HUMIRA [Suspect]
     Active Substance: ADALIMUMAB
     Dosage: FORM STRENGTH: 40 MG
     Route: 058
     Dates: start: 20190407
  6. HUMIRA [Suspect]
     Active Substance: ADALIMUMAB
     Dosage: FORM STRENGTH: 40 MG
     Route: 058
     Dates: end: 202211
  7. HUMIRA [Suspect]
     Active Substance: ADALIMUMAB
     Dosage: FORM STRENGTH: 40 MILLIGRAM
     Route: 058
     Dates: start: 20230513, end: 202309

REACTIONS (8)
  - Inguinal hernia [Not Recovered/Not Resolved]
  - Implant site inflammation [Not Recovered/Not Resolved]
  - Inguinal hernia [Not Recovered/Not Resolved]
  - Laboratory test abnormal [Recovering/Resolving]
  - Incision site discharge [Recovered/Resolved]
  - Inflammation [Not Recovered/Not Resolved]
  - Suture related complication [Recovered/Resolved]
  - Tuberculosis [Not Recovered/Not Resolved]

NARRATIVE: CASE EVENT DATE: 20210101
